FAERS Safety Report 4797437-8 (Version None)
Quarter: 2005Q4

REPORT INFORMATION
  Report Type: 
  Country: None (occurrence: None)
  Receive Date: 20051006
  Receipt Date: 20051006
  Transmission Date: 20060501
  Serious: Yes (Other)
  Sender: FDA-Public Use
  Company Number: None

PATIENT
  Age: 61 Year
  Sex: Female
  Weight: 61.2356 kg

DRUGS (1)
  1. ARM + HAMMER ADVANCED WHITE TOOTHPASTE [Suspect]
     Dosage: ONCE/DAY

REACTIONS (5)
  - APPLICATION SITE REACTION [None]
  - GLOSSODYNIA [None]
  - ORAL PAIN [None]
  - STOMATITIS [None]
  - VIRAL INFECTION [None]
